FAERS Safety Report 20939123 (Version 1)
Quarter: 2022Q2

REPORT INFORMATION
  Report Type: Spontaneous
  Country: None (occurrence: FR)
  Receive Date: 20220609
  Receipt Date: 20220609
  Transmission Date: 20220720
  Serious: Yes (Hospitalization)
  Sender: FDA-Public Use
  Company Number: FR-B.Braun Medical Inc.-2129646

PATIENT
  Age: 84 Year
  Sex: Male

DRUGS (8)
  1. POTASSIUM CHLORIDE [Suspect]
     Active Substance: POTASSIUM CHLORIDE
  2. SILODOSIN [Suspect]
     Active Substance: SILODOSIN
  3. EPLERENONE [Suspect]
     Active Substance: EPLERENONE
  4. LEVOTHYROXINE [Suspect]
     Active Substance: LEVOTHYROXINE
  5. FUROSEMIDE [Suspect]
     Active Substance: FUROSEMIDE
  6. DAPAGLIFLOZIN [Suspect]
     Active Substance: DAPAGLIFLOZIN
  7. ELIQUIS [Suspect]
     Active Substance: APIXABAN
  8. DIGOXIN [Suspect]
     Active Substance: DIGOXIN

REACTIONS (3)
  - Inappropriate schedule of product administration [Recovered/Resolved]
  - Malaise [Recovered/Resolved]
  - Accidental overdose [Recovered/Resolved]
